FAERS Safety Report 18135452 (Version 1)
Quarter: 2020Q3

REPORT INFORMATION
  Report Type: Spontaneous
  Country: US (occurrence: US)
  Receive Date: 20200811
  Receipt Date: 20200811
  Transmission Date: 20201103
  Serious: No
  Sender: FDA-Public Use
  Company Number: US-TEVA-2020-US-1812914

PATIENT
  Age: 39 Year
  Sex: Male

DRUGS (1)
  1. LAMOTRIGINE. [Suspect]
     Active Substance: LAMOTRIGINE
     Route: 065
     Dates: start: 2015

REACTIONS (6)
  - Feeling abnormal [Unknown]
  - Malaise [Unknown]
  - Nausea [Unknown]
  - Taste disorder [Unknown]
  - Ageusia [Unknown]
  - Hypoaesthesia [Unknown]
